FAERS Safety Report 15034195 (Version 1)
Quarter: 2018Q2

REPORT INFORMATION
  Report Type: Spontaneous
  Country: US (occurrence: US)
  Receive Date: 20180620
  Receipt Date: 20180620
  Transmission Date: 20180711
  Serious: No
  Sender: FDA-Public Use
  Company Number: US-TEVA-809777ACC

PATIENT
  Sex: Female

DRUGS (1)
  1. PREDNISONE. [Suspect]
     Active Substance: PREDNISONE
     Indication: GLOMERULONEPHRITIS MINIMAL LESION
     Dosage: DOSE STRENGTH: 5, 80MG, AFTER THREE MONTHS HAD TAPERED THE DOSAGE DOWN TO 5MG
     Dates: start: 20170219, end: 20170908

REACTIONS (2)
  - Hair texture abnormal [Unknown]
  - Alopecia [Unknown]

NARRATIVE: CASE EVENT DATE: 201705
